FAERS Safety Report 5445898-3 (Version None)
Quarter: 2007Q3

REPORT INFORMATION
  Report Type: 
  Country: None (occurrence: None)
  Receive Date: 20070907
  Receipt Date: 20070831
  Transmission Date: 20080115
  Serious: Yes (Other)
  Sender: FDA-Public Use
  Company Number: PHBS2007BR14469

PATIENT
  Age: 54 Year
  Sex: Female
  Weight: 70 kg

DRUGS (2)
  1. FLOTAC [Suspect]
     Indication: BACK PAIN
     Dosage: 70 MG, QD
  2. VOLTAREN [Suspect]
     Indication: BACK PAIN
     Dosage: UNK, ONCE3SDO
     Dates: start: 20070827, end: 20070830

REACTIONS (2)
  - BLOOD PRESSURE AMBULATORY DECREASED [None]
  - PAIN [None]
